FAERS Safety Report 13485559 (Version 2)
Quarter: 2017Q2

REPORT INFORMATION
  Report Type: Spontaneous
  Country: US (occurrence: US)
  Receive Date: 20170426
  Receipt Date: 20170627
  Transmission Date: 20170830
  Serious: Yes (Death, Other)
  Sender: FDA-Public Use
  Company Number: US-PFIZER INC-2016358923

PATIENT
  Age: 61 Year
  Sex: Male
  Weight: 185.9 kg

DRUGS (61)
  1. NOVOLOG [Concomitant]
     Active Substance: INSULIN ASPART
     Indication: TYPE 2 DIABETES MELLITUS
     Dosage: 56 UNITS AT BREAKFAST, 58 UNITS AT LUNCH, AND 62 UNITS AT DINNER ]
     Route: 058
  2. BUMETANIDE. [Concomitant]
     Active Substance: BUMETANIDE
     Indication: OEDEMA
     Dosage: 1 MG, 2X/DAY
     Route: 048
  3. TRIAMCINOLONE ACETONIDE. [Concomitant]
     Active Substance: TRIAMCINOLONE ACETONIDE
     Indication: STASIS DERMATITIS
  4. AMLODIPINE BESYLATE. [Concomitant]
     Active Substance: AMLODIPINE BESYLATE
     Dosage: 10 MG, 1X/DAY, (10MG ONE IN THE MORNING)
     Route: 048
  5. FENOFIBRATE MICRO [Concomitant]
     Active Substance: FENOFIBRATE
     Dosage: 200 MG, 1X/DAY, [1 CAPSULE WITH A MEAL ONCE A DAY]
     Route: 048
  6. LEVOFLOXACIN. [Concomitant]
     Active Substance: LEVOFLOXACIN
     Dosage: 500 MG, 1X/DAY
  7. METHADONE HCL [Concomitant]
     Active Substance: METHADONE HYDROCHLORIDE
     Dosage: 10 MG, 3X/DAY
  8. ASTELIN [Concomitant]
     Active Substance: AZELASTINE HYDROCHLORIDE
     Indication: HYPERSENSITIVITY
     Dosage: UNK UNK, AS NEEDED [137 MCG/SPRAY SOLUTION: 1 PUFF IN EACH NOSTRIL; TWICE A DAY PRN]
     Route: 045
  9. AXERT [Concomitant]
     Active Substance: ALMOTRIPTAN MALATE
     Indication: MIGRAINE
     Dosage: UNK, AS NEEDED [12.5 MG: ONE-TWO AS NEEDED]
     Route: 048
  10. TOUJEO [Concomitant]
     Active Substance: INSULIN GLARGINE
     Indication: BLOOD INSULIN ABNORMAL
     Dosage: 76 IU, 2X/DAY
     Route: 058
  11. TOUJEO [Concomitant]
     Active Substance: INSULIN GLARGINE
     Indication: TYPE 2 DIABETES MELLITUS
  12. LYRICA [Suspect]
     Active Substance: PREGABALIN
     Indication: DIABETIC FOOT
  13. SPIRONOLACTONE. [Concomitant]
     Active Substance: SPIRONOLACTONE
     Dosage: UNK, [INCREASED)
  14. TRIAMCINOLONE ACETONIDE. [Concomitant]
     Active Substance: TRIAMCINOLONE ACETONIDE
     Indication: RASH
     Dosage: UNK, AS NEEDED [1 APPLICATION TO AFFECTED AREA, EXTERNALLY, TWICE A DAY PRN]
  15. METHADONE HCL [Concomitant]
     Active Substance: METHADONE HYDROCHLORIDE
     Dosage: UNK, 3X/DAY [DOSAGE: 120, 10MG THREE TIMES A DAY ]
     Route: 048
  16. XANAX [Concomitant]
     Active Substance: ALPRAZOLAM
     Dosage: 1 MG, 1X/DAY, [1 TABLET AT BEDTIME ONCE A DAY]
  17. PROCTOFOAM HC [Concomitant]
     Active Substance: HYDROCORTISONE ACETATE\PRAMOXINE HYDROCHLORIDE
     Dosage: 10 MG, AS NEEDED
  18. FUROSEMIDE. [Concomitant]
     Active Substance: FUROSEMIDE
     Indication: OEDEMA
     Dosage: UNK
  19. METOLAZONE. [Concomitant]
     Active Substance: METOLAZONE
     Dosage: 10 MG, 1X/DAY
     Route: 048
  20. PAROXETINE HCL [Concomitant]
     Active Substance: PAROXETINE HYDROCHLORIDE
     Dosage: 20 MG, 1X/DAY
     Route: 048
  21. TRIAMCINOLONE [Concomitant]
     Active Substance: TRIAMCINOLONE
     Dosage: 1 %, 2X/DAY
  22. HYDROCHLOROTHIAZIDE. [Concomitant]
     Active Substance: HYDROCHLOROTHIAZIDE
     Indication: OEDEMA PERIPHERAL
     Dosage: 25 MG, 1X/DAY
     Route: 048
  23. PROMETHAZINE HCL [Concomitant]
     Active Substance: PROMETHAZINE HYDROCHLORIDE
     Indication: NAUSEA
     Dosage: 25 MG, AS NEEDED [1 TABLET EVERY 6 HOURS PRN]
     Route: 048
  24. TORADOL [Concomitant]
     Active Substance: KETOROLAC TROMETHAMINE
     Indication: STASIS DERMATITIS
     Dosage: 60 MG, UNK [LVN ON LEFT GLUTEUS]
  25. ALPRAZOLAM. [Concomitant]
     Active Substance: ALPRAZOLAM
     Dosage: UNK, 1X/DAY [1MG, HALF TO ONE, AT BEDTIME ]
     Route: 048
  26. LYRICA [Suspect]
     Active Substance: PREGABALIN
     Indication: DIABETES MELLITUS
  27. POTASSIUM CHLORIDE. [Concomitant]
     Active Substance: POTASSIUM CHLORIDE
     Dosage: 10 MEQ, 3X/DAY [20 MEQ: TAKE 1/2 TABLET]
     Route: 048
  28. LEVEMIR [Concomitant]
     Active Substance: INSULIN DETEMIR
     Indication: TYPE 2 DIABETES MELLITUS
     Dosage: 76 IU, 2X/DAY [SOLUTION INJECT 76 UNITS IN THE EVENING TWICE A DAY (BID)]
     Route: 058
  29. BUMETANIDE. [Concomitant]
     Active Substance: BUMETANIDE
     Indication: OEDEMA PERIPHERAL
  30. OMEPRAZOLE. [Concomitant]
     Active Substance: OMEPRAZOLE
     Dosage: 40 MG, 1X/DAY
     Route: 048
  31. LORATADINE. [Concomitant]
     Active Substance: LORATADINE
     Dosage: 10 MG, 1X/DAY
  32. VALSARTAN. [Concomitant]
     Active Substance: VALSARTAN
     Dosage: 320 MG, 1X/DAY
     Route: 048
  33. TESTOSTERONE. [Concomitant]
     Active Substance: TESTOSTERONE
     Dosage: UNK, 2X/WEEK  2X/WEEK, [0.04 TWICE A WEEK]
  34. ZOLPIDEM TARTATE [Concomitant]
     Active Substance: ZOLPIDEM TARTRATE
     Dosage: 12.5 MG, 1X/DAY, [ONE AT BEDTIME]
  35. SPIRONOLACTONE. [Concomitant]
     Active Substance: SPIRONOLACTONE
     Indication: OEDEMA PERIPHERAL
     Dosage: 100 MG, 1X/DAY
     Route: 048
  36. HYDROXYZINE [Concomitant]
     Active Substance: HYDROXYZINE HYDROCHLORIDE
     Indication: PRURITUS
     Dosage: 25 MG, 2-4 TIMES A DAY
     Route: 048
  37. TERAZOSIN HCL [Concomitant]
     Active Substance: TERAZOSIN HYDROCHLORIDE
     Dosage: 5 MG, 2X/DAY
     Route: 048
  38. METFORMIN HCL [Concomitant]
     Active Substance: METFORMIN HYDROCHLORIDE
     Dosage: 1000 MG, 2X/DAY [TWO 500 MG TWO TIMES A DAY ]
     Route: 048
  39. DIOVAN [Concomitant]
     Active Substance: VALSARTAN
     Dosage: 320 MG, 1X/DAY
     Route: 048
  40. GUAIFENESIN. [Concomitant]
     Active Substance: GUAIFENESIN
     Indication: NASAL DISCOMFORT
     Dosage: 1200 MG, AS NEEDED [1 TABLET AS NEEDED EVERY 12 HRS PRN]
  41. PROCTOFOAM HC [Concomitant]
     Active Substance: HYDROCORTISONE ACETATE\PRAMOXINE HYDROCHLORIDE
     Indication: HAEMORRHOIDS
     Dosage: UNK, AS NEEDED [1-1 % FOAM 1 APPLICATION AS NEEDED FOUR TIMES A DAY]
  42. TRIAMCINOLONE ACETONIDE. [Concomitant]
     Active Substance: TRIAMCINOLONE ACETONIDE
     Indication: PRURITUS
  43. TRIAMCINOLONE ACETONIDE. [Concomitant]
     Active Substance: TRIAMCINOLONE ACETONIDE
     Indication: DERMATITIS
  44. NASONEX [Concomitant]
     Active Substance: MOMETASONE FUROATE
     Dosage: 50 UG, 2X/DAY
     Route: 045
  45. SUMATRIPTAN SUCCINATE. [Concomitant]
     Active Substance: SUMATRIPTAN SUCCINATE
     Indication: MIGRAINE
     Dosage: 100 MG, AS NEEDED [1 TABLET AS NEEDED ONE TIME EVERY 2 HOURS PRN, MAX 2 PER DAY]
  46. SUMATRIPTAN SUCCINATE. [Concomitant]
     Active Substance: SUMATRIPTAN SUCCINATE
     Indication: HEADACHE
  47. TIZANIDINE HCL [Concomitant]
     Active Substance: TIZANIDINE HYDROCHLORIDE
     Indication: MUSCLE SPASMS
     Dosage: 2 MG, AS NEEDED [1 TABLET AS NEEDED TWICE A DAY (BID) PRN]
  48. TIZANIDINE HCL [Concomitant]
     Active Substance: TIZANIDINE HYDROCHLORIDE
     Dosage: UNK, 3X/DAY [2MB THREE TIMES A DAY ]
     Route: 048
  49. ASPIRIN. [Concomitant]
     Active Substance: ASPIRIN
     Dosage: 81 MG, 1X/DAY
  50. ANASTROZOLE. [Concomitant]
     Active Substance: ANASTROZOLE
     Dosage: 2 MG, WEEKLY
  51. AZELASTINE [Concomitant]
     Active Substance: AZELASTINE
     Dosage: UNK, AS NEEDED [137 MCG, 1-2 AS NEEDED]
     Route: 045
  52. VOLTAREN [Concomitant]
     Active Substance: DICLOFENAC SODIUM
     Dosage: 1 %, 4X/DAY
  53. LYRICA [Suspect]
     Active Substance: PREGABALIN
     Indication: BURNING SENSATION
     Dosage: 200 MG, 3X/DAY
     Route: 048
  54. TERAZOSIN HCL [Concomitant]
     Active Substance: TERAZOSIN HYDROCHLORIDE
     Dosage: 5 MG, 1X/DAY
  55. METFORMIN HCL [Concomitant]
     Active Substance: METFORMIN HYDROCHLORIDE
     Indication: TYPE 2 DIABETES MELLITUS
     Dosage: 1000 MG, 2X/DAY
     Route: 048
  56. NOVOLOG [Concomitant]
     Active Substance: INSULIN ASPART
     Indication: DIABETES MELLITUS
     Dosage: 60 UNITS, 64 UNITS, 70 UNITS, AND 10 UNITS 4 TIMES A DAY
     Route: 058
  57. NASONEX [Concomitant]
     Active Substance: MOMETASONE FUROATE
     Dosage: UNK UNK, 1X/DAY [50 MCG/ACT SUSPENSION 2 SPRAYS IN EACH NOSTRIL ONCE A DAY]
     Route: 045
  58. FISH OIL [Concomitant]
     Active Substance: FISH OIL
     Dosage: 1000 MG, 2X/DAY
  59. METOLAZONE. [Concomitant]
     Active Substance: METOLAZONE
     Indication: OEDEMA PERIPHERAL
     Dosage: 5 MG, 1X/DAY
     Route: 048
  60. DIPHENHYDRAMINE. [Concomitant]
     Active Substance: DIPHENHYDRAMINE
     Dosage: 100 MG, DAILY [50MG TWO A DAY ]
     Route: 048
  61. K-DUR [Concomitant]
     Active Substance: POTASSIUM CHLORIDE
     Dosage: 10 MG, 3X/DAY, [20 MG HALF OF ONE THREE TIMES A DAY BY MOUTH]
     Route: 048

REACTIONS (9)
  - Pain [Fatal]
  - Sleep apnoea syndrome [Unknown]
  - Peripheral swelling [Unknown]
  - Loss of personal independence in daily activities [Unknown]
  - Completed suicide [Fatal]
  - Malaise [Fatal]
  - Abdominal distension [Unknown]
  - Abdominal pain upper [Unknown]
  - Insomnia [Unknown]

NARRATIVE: CASE EVENT DATE: 20170408
